FAERS Safety Report 9861713 (Version 1)
Quarter: 2014Q1

REPORT INFORMATION
  Report Type: Spontaneous
  Country: US (occurrence: None)
  Receive Date: 20140131
  Receipt Date: 20140131
  Transmission Date: 20141002
  Serious: Yes (Life-Threatening, Hospitalization)
  Sender: FDA-Public Use
  Company Number: None

PATIENT
  Age: 87 Year
  Sex: Female
  Weight: 55.8 kg

DRUGS (11)
  1. XARELTO [Suspect]
     Indication: ATRIAL FIBRILLATION
     Route: 048
     Dates: start: 20131205, end: 20140116
  2. FUROSEMIDE [Concomitant]
  3. LOSARTAN [Concomitant]
  4. K-DUR [Concomitant]
  5. DETROL [Concomitant]
  6. ACETAZOLAMIDE [Concomitant]
  7. VITAMIN D [Concomitant]
  8. VITAMIN B12 [Concomitant]
  9. MAGNESIUM OXIDE [Concomitant]
  10. OMEPRAZOLE [Concomitant]
  11. PROPRANOLOL HYDROCHLORIDE [Concomitant]

REACTIONS (2)
  - Aspartate aminotransferase increased [None]
  - Alanine aminotransferase increased [None]
